FAERS Safety Report 10034070 (Version 1)
Quarter: 2014Q1

REPORT INFORMATION
  Report Type: Spontaneous
  Country: US (occurrence: None)
  Receive Date: 20140324
  Receipt Date: 20140324
  Transmission Date: 20141002
  Serious: Yes (Hospitalization)
  Sender: FDA-Public Use
  Company Number: None

PATIENT
  Age: 44 Year
  Sex: Male
  Weight: 85 kg

DRUGS (6)
  1. CYCLOPHOSPHAMIDE [Suspect]
     Dates: end: 20140219
  2. DOXORUBICIN HYDROCHLORIDE [Suspect]
     Dates: end: 20140218
  3. ETOPOSIDE [Suspect]
     Dates: end: 20140218
  4. PREDNISONE [Suspect]
     Dates: end: 20140219
  5. RITUXIMAB [Suspect]
     Dates: end: 20140215
  6. VINCRISTINE SULFATE [Suspect]
     Dates: end: 20140218

REACTIONS (4)
  - Haematemesis [None]
  - Haemoglobin decreased [None]
  - Gastric haemorrhage [None]
  - Gastric ulcer [None]
